FAERS Safety Report 4509844-9 (Version None)
Quarter: 2004Q4

REPORT INFORMATION
  Report Type: 
  Country: None (occurrence: None)
  Receive Date: 20041119
  Receipt Date: 20041110
  Transmission Date: 20050328
  Serious: Yes (Life-Threatening, Hospitalization)
  Sender: FDA-Public Use
  Company Number: 2004-BP-11555BP

PATIENT
  Age: 42 Year
  Sex: Male

DRUGS (15)
  1. CATAPRES [Suspect]
     Indication: NEUROPATHY PERIPHERAL
     Dosage: 0.1 MG (2.5 MG, 1 PATCH Q WEEK), TO
     Route: 061
     Dates: start: 20040920, end: 20040920
  2. DURAGESIC [Suspect]
     Indication: PAIN
     Dosage: 50 UG/HR 1  IN 72 HOURS), TO
     Route: 061
     Dates: start: 20040101
  3. OXY IR [Concomitant]
  4. PERCOCET [Concomitant]
  5. LEXAPRO [Concomitant]
  6. NEURONTIN [Concomitant]
  7. SENOKOT (SENNA ALEXANDRINA FRUIT) [Concomitant]
  8. MULTI-VITAMIN [Concomitant]
  9. LOXAPINE [Concomitant]
  10. LASIX [Concomitant]
  11. BILIFY (ARIPIPRAZOLE) [Concomitant]
  12. DOXEPIN (DOXEPINE) [Concomitant]
  13. PLAVIX [Concomitant]
  14. AMBIEN [Concomitant]
  15. ATIVAN [Concomitant]

REACTIONS (14)
  - APNOEA [None]
  - BLOOD GLUCOSE INCREASED [None]
  - BREATH SOUNDS DECREASED [None]
  - COMA [None]
  - DRUG SCREEN POSITIVE [None]
  - MEDICATION ERROR [None]
  - OVERDOSE [None]
  - PAIN [None]
  - RESPIRATORY ARREST [None]
  - SINUS TACHYCARDIA [None]
  - SYNCOPE [None]
  - VENTRICULAR EXTRASYSTOLES [None]
  - WHEEZING [None]
  - WHITE BLOOD CELL COUNT INCREASED [None]
